FAERS Safety Report 12745120 (Version 1)
Quarter: 2016Q3

REPORT INFORMATION
  Report Type: Spontaneous
  Country: US (occurrence: US)
  Receive Date: 20160915
  Receipt Date: 20160915
  Transmission Date: 20161109
  Serious: Yes (Life-Threatening, Hospitalization, Other)
  Sender: FDA-Public Use
  Company Number: US-ZYDUS-012051

PATIENT
  Age: 6 Decade
  Sex: Female

DRUGS (2)
  1. HYDROXYCHLOROQUINE [Suspect]
     Active Substance: HYDROXYCHLOROQUINE
     Indication: PRODUCT USED FOR UNKNOWN INDICATION
     Dosage: 60 TABS OF HYDROXYCHLOROQUINE 200 MG
     Route: 048
  2. OXYCODONE HYDROCHLORIDE/PARACETAMOL [Suspect]
     Active Substance: ACETAMINOPHEN\OXYCODONE HYDROCHLORIDE
     Indication: PRODUCT USED FOR UNKNOWN INDICATION
     Dosage: 35 TABS OF OXYCODONE/ ACETAMINOPHEN, 5/325 MG
     Route: 065

REACTIONS (10)
  - Agitation [Unknown]
  - Hypokalaemia [Unknown]
  - Ventricular fibrillation [Unknown]
  - Electrocardiogram U-wave abnormality [Unknown]
  - Overdose [Unknown]
  - Hypomagnesaemia [Unknown]
  - Torsade de pointes [Unknown]
  - Somnolence [Unknown]
  - Hypotension [Unknown]
  - Cardiac arrest [Unknown]
